FAERS Safety Report 6877962-6 (Version None)
Quarter: 2010Q3

REPORT INFORMATION
  Report Type: 
  Country: None (occurrence: None)
  Receive Date: 20100727
  Receipt Date: 20100723
  Transmission Date: 20110219
  Serious: Yes (Death, Hospitalization)
  Sender: FDA-Public Use
  Company Number: PHHY2010FR48280

PATIENT
  Sex: Male

DRUGS (8)
  1. GLEEVEC [Suspect]
     Indication: ACUTE LYMPHOCYTIC LEUKAEMIA
     Dosage: UNK
     Dates: start: 20090101
  2. HEPARIN [Suspect]
     Indication: EMBOLISM ARTERIAL
  3. CORTICOSTEROIDS [Concomitant]
  4. CYCLOPHOSPHAMIDE [Concomitant]
  5. ONCOVIN [Concomitant]
     Dosage: UNK
     Dates: end: 20090425
  6. ANTHRACYCLINES [Concomitant]
  7. FORTUM [Concomitant]
  8. IMIPENEM AND CILASTATIN [Concomitant]

REACTIONS (26)
  - ACUTE LYMPHOCYTIC LEUKAEMIA [None]
  - BLAST CELLS PRESENT [None]
  - BONE MARROW FAILURE [None]
  - CATHETER PLACEMENT [None]
  - DIALYSIS [None]
  - ENDOTRACHEAL INTUBATION [None]
  - FLUID RETENTION [None]
  - HAEMOGLOBIN DECREASED [None]
  - HEPATIC FAILURE [None]
  - HISTIOCYTOSIS HAEMATOPHAGIC [None]
  - HYPERTHERMIA [None]
  - HYPOALBUMINAEMIA [None]
  - HYPOXIA [None]
  - INFECTION [None]
  - MALIGNANT NEOPLASM PROGRESSION [None]
  - MULTI-ORGAN FAILURE [None]
  - NECROSIS [None]
  - PLATELET COUNT DECREASED [None]
  - PROTEIN TOTAL DECREASED [None]
  - PULMONARY HAEMORRHAGE [None]
  - RENAL FAILURE ACUTE [None]
  - SEPTIC SHOCK [None]
  - SODIUM RETENTION [None]
  - TACHYPNOEA [None]
  - TRANSAMINASES INCREASED [None]
  - VESSEL PUNCTURE SITE HAEMATOMA [None]
